FAERS Safety Report 11259505 (Version 1)
Quarter: 2015Q3

REPORT INFORMATION
  Report Type: Spontaneous
  Country: US (occurrence: None)
  Receive Date: 20150709
  Receipt Date: 20150709
  Transmission Date: 20151125
  Serious: No
  Sender: FDA-Public Use
  Company Number: None

PATIENT
  Age: 52 Year
  Sex: Female
  Weight: 79.38 kg

DRUGS (4)
  1. LIVALO [Suspect]
     Active Substance: PITAVASTATIN CALCIUM
     Indication: BLOOD CHOLESTEROL INCREASED
     Route: 048
     Dates: start: 20150522, end: 20150628
  2. ONE DAILY VITAMIN [Concomitant]
  3. PAXIL [Concomitant]
     Active Substance: PAROXETINE HYDROCHLORIDE
  4. 1-1000 D3 [Concomitant]

REACTIONS (3)
  - Paraesthesia [None]
  - Pain in extremity [None]
  - Feeling hot [None]

NARRATIVE: CASE EVENT DATE: 20150628
